FAERS Safety Report 9731501 (Version 1)
Quarter: 2013Q4

REPORT INFORMATION
  Report Type: Spontaneous
  Country: GB (occurrence: GB)
  Receive Date: 20131205
  Receipt Date: 20131205
  Transmission Date: 20140711
  Serious: Yes (Life-Threatening, Hospitalization, Other)
  Sender: FDA-Public Use
  Company Number: GB-ACCORD-020477

PATIENT
  Age: 53 Year
  Sex: Female
  Weight: 55.7 kg

DRUGS (6)
  1. IRINOTECAN HYDROCHLORIDE [Suspect]
     Indication: COLORECTAL CANCER METASTATIC
     Route: 042
     Dates: start: 20130516
  2. FLUOROURACIL [Suspect]
     Indication: COLORECTAL CANCER METASTATIC
     Dosage: 4000 MG/46 HOURS
     Route: 040
     Dates: start: 20130516
  3. AVASTIN [Suspect]
     Indication: COLORECTAL CANCER METASTATIC
     Route: 042
     Dates: start: 20130516
  4. CITALOPRAM [Concomitant]
     Indication: DEPRESSION
     Route: 048
     Dates: start: 20130717, end: 20130719
  5. DIAZEPAM [Concomitant]
     Indication: INSOMNIA
     Route: 048
  6. ZOPICLONE [Concomitant]
     Indication: INSOMNIA
     Dosage: AT NIGHT
     Route: 048

REACTIONS (4)
  - Suicide attempt [Unknown]
  - Cervical vertebral fracture [Recovered/Resolved]
  - Malaise [Unknown]
  - Hallucination [Unknown]
